FAERS Safety Report 9149233 (Version 1)
Quarter: 2013Q1

REPORT INFORMATION
  Report Type: Spontaneous
  Country: US (occurrence: None)
  Receive Date: 20130228
  Receipt Date: 20130228
  Transmission Date: 20140127
  Serious: No
  Sender: FDA-Public Use
  Company Number: None

PATIENT
  Sex: Male
  Weight: 102.06 kg

DRUGS (2)
  1. ATENOLOL SANDOZ [Suspect]
     Indication: HEART RATE INCREASED
     Dates: start: 20121221
  2. LOSARTAN POTASSIUM 100 MG [Suspect]
     Indication: HYPERTENSION
     Dates: start: 20130118

REACTIONS (12)
  - Product size issue [None]
  - Drug dose omission [None]
  - Blood pressure increased [None]
  - Blood potassium increased [None]
  - Blood glucose increased [None]
  - Breast swelling [None]
  - Breast tenderness [None]
  - Breast pain [None]
  - Diarrhoea [None]
  - Constipation [None]
  - Dry mouth [None]
  - Hyperchlorhydria [None]
